FAERS Safety Report 9355721 (Version 3)
Quarter: 2014Q1

REPORT INFORMATION
  Report Type: Spontaneous
  Country: US (occurrence: US)
  Receive Date: 20130619
  Receipt Date: 20140218
  Transmission Date: 20141002
  Serious: Yes (Death, Hospitalization)
  Sender: FDA-Public Use
  Company Number: US-B.I. PHARMACEUTICALS,INC./RIDGEFIELD-2013-BI-16745BP

PATIENT
  Age: 72 Year
  Sex: Male
  Weight: 101.83 kg

DRUGS (10)
  1. PRADAXA [Suspect]
     Indication: CEREBROVASCULAR ACCIDENT PROPHYLAXIS
     Dates: start: 20110321, end: 20110825
  2. PRADAXA [Suspect]
     Indication: THROMBOSIS PROPHYLAXIS
  3. PRADAXA [Suspect]
     Indication: ATRIAL FIBRILLATION
  4. ASPIRIN [Concomitant]
  5. COREG [Concomitant]
  6. AVODART [Concomitant]
     Dates: start: 2005, end: 2011
  7. COZAAR [Concomitant]
  8. PRAVACHOL [Concomitant]
     Dates: start: 2005, end: 2011
  9. ACIPHEX [Concomitant]
     Dates: start: 2005, end: 2011
  10. FLOMAX [Concomitant]

REACTIONS (3)
  - Gastrointestinal haemorrhage [Fatal]
  - Anaemia [Fatal]
  - Myocardial infarction [Fatal]
